FAERS Safety Report 17722756 (Version 1)
Quarter: 2020Q2

REPORT INFORMATION
  Report Type: Spontaneous
  Country: PL (occurrence: PL)
  Receive Date: 20200429
  Receipt Date: 20200429
  Transmission Date: 20200714
  Serious: Yes (Other)
  Sender: FDA-Public Use
  Company Number: PL-VELOXIS PHARMACEUTICALS-2020VELPL-000376

PATIENT
  Age: 24 Year
  Sex: Female

DRUGS (2)
  1. CLOBETASOL PROPIONATE. [Suspect]
     Active Substance: CLOBETASOL PROPIONATE
     Indication: SCLERODERMA
     Dosage: EVERY DAY
  2. ENVARSUS XR [Suspect]
     Active Substance: TACROLIMUS
     Indication: SCLERODERMA
     Dosage: UNK

REACTIONS (6)
  - Condition aggravated [Recovered/Resolved]
  - Drug ineffective [Unknown]
  - Vulvovaginal dryness [Recovered/Resolved]
  - Burning sensation [Recovered/Resolved]
  - Loss of personal independence in daily activities [Unknown]
  - Off label use [Unknown]
